FAERS Safety Report 7399011-6 (Version None)
Quarter: 2011Q2

REPORT INFORMATION
  Report Type: 
  Country: None (occurrence: None)
  Receive Date: 20110407
  Receipt Date: 20110405
  Transmission Date: 20111010
  Serious: No
  Sender: FDA-Public Use
  Company Number: US-TEVA-274894USA

PATIENT
  Sex: Male

DRUGS (1)
  1. ALBUTEROL SULFATE AUTOHALER [Suspect]
     Indication: ASTHMA EXERCISE INDUCED
     Route: 055
     Dates: start: 20100901

REACTIONS (3)
  - DISTURBANCE IN ATTENTION [None]
  - FALL [None]
  - FEELING ABNORMAL [None]
